FAERS Safety Report 4335841-2 (Version None)
Quarter: 2004Q2

REPORT INFORMATION
  Report Type: 
  Country: None (occurrence: None)
  Receive Date: 20040405
  Receipt Date: 20040324
  Transmission Date: 20050107
  Serious: Yes (Hospitalization)
  Sender: FDA-Public Use
  Company Number: 03P-056-0241618-00

PATIENT
  Age: 51 Year
  Sex: Male

DRUGS (7)
  1. DEPAKOTE [Suspect]
     Indication: BIPOLAR DISORDER
     Dosage: 500 MG, 2 IN 1 D, ORAL
     Route: 048
  2. VENLAFAXINE HCL [Concomitant]
  3. CITALOPRAM [Concomitant]
  4. CYAMEMAZINE [Concomitant]
  5. PARAFFIN [Concomitant]
  6. CASCARA DRY EXTRACT [Concomitant]
  7. MACROGOL [Concomitant]

REACTIONS (9)
  - AREFLEXIA [None]
  - CEREBELLAR SYNDROME [None]
  - CEREBROVASCULAR STENOSIS [None]
  - DYSARTHRIA [None]
  - DYSPHAGIA [None]
  - LACUNAR INFARCTION [None]
  - RENAL ARTERY STENOSIS [None]
  - TRANSIENT ISCHAEMIC ATTACK [None]
  - VASCULITIS CEREBRAL [None]
